FAERS Safety Report 22594267 (Version 4)
Quarter: 2023Q4

REPORT INFORMATION
  Report Type: Spontaneous
  Country: IN (occurrence: IN)
  Receive Date: 20230613
  Receipt Date: 20231130
  Transmission Date: 20240110
  Serious: Yes (Other)
  Sender: FDA-Public Use
  Company Number: IN-GILEAD-2023-0631937

PATIENT
  Age: 63 Year
  Sex: Female

DRUGS (9)
  1. VEKLURY [Suspect]
     Active Substance: REMDESIVIR
     Indication: COVID-19
     Dosage: 3 DOSES BY INJECTION, ALTERNATE DAYS
     Route: 042
     Dates: start: 2021, end: 2021
  2. DOXYCYCLINE [Suspect]
     Active Substance: DOXYCYCLINE
     Indication: COVID-19
     Dosage: UNK
     Route: 065
     Dates: start: 2021, end: 2021
  3. MEROPENEM [Suspect]
     Active Substance: MEROPENEM
     Indication: COVID-19
     Dosage: UNK
     Route: 065
     Dates: start: 2021, end: 2021
  4. AMIKACIN [Suspect]
     Active Substance: AMIKACIN
     Indication: COVID-19
     Dosage: UNK
     Route: 065
     Dates: start: 2021
  5. ENOXAPARIN [Concomitant]
     Active Substance: ENOXAPARIN
  6. INSULIN NOS [Concomitant]
     Active Substance: INSULIN NOS
  7. BUDESONIDE [Concomitant]
     Active Substance: BUDESONIDE
  8. FORMOTEROL FUMARATE;GLYCOPYRRONIUM BROMIDE [Concomitant]
  9. OXYGEN [Concomitant]
     Active Substance: OXYGEN

REACTIONS (3)
  - Retinal vein occlusion [Recovering/Resolving]
  - Macular oedema [Recovering/Resolving]
  - Off label use [Recovered/Resolved]

NARRATIVE: CASE EVENT DATE: 20210101
